FAERS Safety Report 9156880 (Version 1)
Quarter: 2013Q1

REPORT INFORMATION
  Report Type: Spontaneous
  Country: AU (occurrence: AU)
  Receive Date: 20130312
  Receipt Date: 20130312
  Transmission Date: 20140127
  Serious: Yes (Other)
  Sender: FDA-Public Use
  Company Number: PHHY2013AU023536

PATIENT
  Age: 53 None
  Sex: Female

DRUGS (2)
  1. ACLASTA [Suspect]
     Dosage: 5 MG, UNK
     Route: 042
     Dates: start: 20111221
  2. ACLASTA [Suspect]
     Dosage: 5 MG, UNK
     Route: 042
     Dates: start: 20130308

REACTIONS (5)
  - Fall [Recovering/Resolving]
  - Patella fracture [Recovering/Resolving]
  - Radius fracture [Recovering/Resolving]
  - Influenza like illness [Recovering/Resolving]
  - Vomiting [Recovering/Resolving]
